FAERS Safety Report 4597359-1 (Version None)
Quarter: 2005Q1

REPORT INFORMATION
  Report Type: 
  Country: None (occurrence: None)
  Receive Date: 20050303
  Receipt Date: 20040712
  Transmission Date: 20050727
  Serious: No
  Sender: FDA-Public Use
  Company Number: 04P-163-0263152

PATIENT
  Age: 59 Year
  Sex: Female

DRUGS (3)
  1. REQUIP [Suspect]
     Indication: TREMOR
     Route: 048
     Dates: start: 20030101
  2. DEPAKOTE [Suspect]
     Indication: BIPOLAR DISORDER
     Dosage: 500MG TWICE PER DAY
     Route: 065
     Dates: start: 20000101, end: 20030101
  3. CARBIDOPA [Suspect]
     Indication: TREMOR
     Route: 048
     Dates: start: 20030101

REACTIONS (1)
  - GASTRIC DISORDER [None]
